FAERS Safety Report 6199553-5 (Version None)
Quarter: 2009Q2

REPORT INFORMATION
  Report Type: 
  Country: None (occurrence: None)
  Receive Date: 20090522
  Receipt Date: 20090515
  Transmission Date: 20091009
  Serious: Yes (Hospitalization)
  Sender: FDA-Public Use
  Company Number: A0785629A

PATIENT
  Age: 48 Year
  Sex: Female
  Weight: 77.3 kg

DRUGS (23)
  1. AVANDIA [Suspect]
     Route: 048
     Dates: start: 20020614, end: 20061108
  2. AVANDAMET [Suspect]
     Dates: start: 20031111, end: 20070701
  3. METFORMIN HCL [Concomitant]
     Dates: start: 20020301
  4. GLARGINE [Concomitant]
     Dates: start: 20061121
  5. INSULIN [Concomitant]
     Dates: start: 20061121
  6. LOPRESSOR [Concomitant]
     Dates: start: 20060401
  7. CELEBREX [Concomitant]
     Dates: start: 20040101
  8. VIOXX [Concomitant]
     Dates: start: 20040101
  9. LIPITOR [Concomitant]
     Dates: start: 20060101
  10. ATACAND [Concomitant]
     Indication: HYPERTENSION
  11. HYDROCHLOROTHIAZIDE [Concomitant]
  12. PLAVIX [Concomitant]
  13. AMOXICILLIN [Concomitant]
     Indication: BACTERIAL INFECTION
  14. ASPIRIN [Concomitant]
  15. AUGMENTIN '125' [Concomitant]
     Indication: BACTERIAL INFECTION
  16. BIAXIN [Concomitant]
     Indication: BACTERIAL INFECTION
  17. CHANTIX [Concomitant]
  18. DETROL [Concomitant]
  19. METOPROLOL SUCCINATE [Concomitant]
     Indication: HYPERTENSION
  20. NAPROSYN [Concomitant]
     Indication: PAIN
  21. NEURONTIN [Concomitant]
  22. NICODERM [Concomitant]
  23. PREMARIN [Concomitant]
     Indication: MENOPAUSE

REACTIONS (5)
  - ARTERIOSCLEROSIS [None]
  - CHEST PAIN [None]
  - CORONARY ARTERY DISEASE [None]
  - MYOCARDIAL INFARCTION [None]
  - PAIN [None]
